FAERS Safety Report 6275597-X (Version None)
Quarter: 2009Q3

REPORT INFORMATION
  Report Type: 
  Country: None (occurrence: None)
  Receive Date: 20090721
  Receipt Date: 20090710
  Transmission Date: 20100115
  Serious: Yes (Hospitalization)
  Sender: FDA-Public Use
  Company Number: JP-WYE-H09807709

PATIENT
  Sex: Female

DRUGS (2)
  1. ZOSYN [Suspect]
     Indication: BACTERIAL INFECTION
     Dosage: 4.5 G
     Route: 041
     Dates: start: 20090502, end: 20090502
  2. SEISHOKU [Suspect]
     Dosage: 100 ML
     Route: 041
     Dates: start: 20090502, end: 20090502

REACTIONS (2)
  - ANAPHYLACTIC SHOCK [None]
  - SHOCK [None]
